FAERS Safety Report 9746071 (Version 2)
Quarter: 2015Q3

REPORT INFORMATION
  Report Type: Spontaneous
  Country: GB (occurrence: GB)
  Receive Date: 20131211
  Receipt Date: 20150722
  Transmission Date: 20151125
  Serious: No
  Sender: FDA-Public Use
  Company Number: GB-GILEAD-2009-0024099

PATIENT
  Sex: Male

DRUGS (3)
  1. SUSTIVA [Concomitant]
     Active Substance: EFAVIRENZ
  2. ATRIPLA [Suspect]
     Active Substance: EFAVIRENZ\EMTRICITABINE\TENOFOVIR DISOPROXIL FUMARATE
     Indication: PRODUCT USED FOR UNKNOWN INDICATION
  3. TRUVADA [Concomitant]
     Active Substance: EMTRICITABINE\TENOFOVIR DISOPROXIL FUMARATE

REACTIONS (2)
  - Abnormal dreams [Recovering/Resolving]
  - Dizziness [Recovering/Resolving]
